FAERS Safety Report 4932753-8 (Version None)
Quarter: 2006Q1

REPORT INFORMATION
  Report Type: 
  Country: None (occurrence: None)
  Receive Date: 20060302
  Receipt Date: 20060302
  Transmission Date: 20060701
  Serious: Yes (Other)
  Sender: FDA-Public Use
  Company Number: None

PATIENT
  Age: 28 Year
  Sex: Female
  Weight: 72.5755 kg

DRUGS (3)
  1. ZICAM EXTREME CONGESTION RELIEF   0.05%   MATRIXX INITIATIVES [Suspect]
     Indication: NASAL CONGESTION
     Dosage: 2-3 PUMPS JUST INSIDE NOSE   2 TIMES PER DAY   NASAL
     Route: 045
     Dates: start: 20060213, end: 20060220
  2. ZICAM EXTREME CONGESTION RELIEF   0.05%   MATRIXX INITIATIVES [Suspect]
     Indication: NASOPHARYNGITIS
     Dosage: 2-3 PUMPS JUST INSIDE NOSE   2 TIMES PER DAY   NASAL
     Route: 045
     Dates: start: 20060213, end: 20060220
  3. ZICAM EXTREME CONGESTION RELIEF   0.05%   MATRIXX INITIATIVES [Suspect]
     Indication: VIRAL INFECTION
     Dosage: 2-3 PUMPS JUST INSIDE NOSE   2 TIMES PER DAY   NASAL
     Route: 045
     Dates: start: 20060213, end: 20060220

REACTIONS (3)
  - AGEUSIA [None]
  - ANOSMIA [None]
  - PAIN [None]
